FAERS Safety Report 4490528-0 (Version None)
Quarter: 2004Q4

REPORT INFORMATION
  Report Type: 
  Country: None (occurrence: None)
  Receive Date: 20041102
  Receipt Date: 20001207
  Transmission Date: 20050328
  Serious: Yes (Death, Hospitalization)
  Sender: FDA-Public Use
  Company Number: GB-SOLVAY-00201000066

PATIENT
  Age: 30993 Day
  Sex: Female
  Weight: 75 kg

DRUGS (7)
  1. ASPIRIN [Concomitant]
     Indication: ILL-DEFINED DISORDER
     Dosage: DAILY DOSE: UNK.
     Route: 048
  2. BLINDED THERAPY (PERINDOPRIL VS. PLACEBO) [Suspect]
     Indication: CARDIAC FAILURE CHRONIC
     Dosage: DAILY DOSE: 4 MG.
     Route: 048
     Dates: start: 20000905, end: 20001201
  3. BLINDED THERAPY (PERINDOPRIL VS. PLACEBO) [Suspect]
     Dosage: DAILY DOSE: 4 MG.
     Route: 048
     Dates: start: 20001201, end: 20001201
  4. BLINDED THERAPY (PERINDOPRIL VS. PLACEBO) [Suspect]
     Dosage: DAILY DOSE: 4 MG.
     Route: 048
     Dates: start: 20010101, end: 20010606
  5. LIPID LOWERING AGENT [Concomitant]
     Indication: ILL-DEFINED DISORDER
     Dosage: DAILY DOSE: UNK.
     Route: 065
  6. NITRATE [Concomitant]
     Indication: ILL-DEFINED DISORDER
     Dosage: DAILY DOSE: UNK.
     Route: 065
  7. ALDOSTERONE [Concomitant]
     Indication: ILL-DEFINED DISORDER
     Dosage: DAILY DOSE: UNK.
     Route: 065

REACTIONS (25)
  - ANGINA PECTORIS [None]
  - ANGINA UNSTABLE [None]
  - CARDIAC FAILURE [None]
  - CEREBROVASCULAR ACCIDENT [None]
  - CHEST PAIN [None]
  - COUGH [None]
  - DEEP VEIN THROMBOSIS [None]
  - DYSPHASIA [None]
  - DYSPNOEA [None]
  - ELECTROMECHANICAL DISSOCIATION [None]
  - HAEMOPTYSIS [None]
  - LOWER RESPIRATORY TRACT INFECTION [None]
  - MYOCARDIAL INFARCTION [None]
  - MYOCARDIAL ISCHAEMIA [None]
  - NAUSEA [None]
  - OEDEMA PERIPHERAL [None]
  - OVERDOSE [None]
  - PAIN IN JAW [None]
  - PULMONARY OEDEMA [None]
  - RENAL IMPAIRMENT [None]
  - TRANSIENT ISCHAEMIC ATTACK [None]
  - VENTRICULAR FIBRILLATION [None]
  - VENTRICULAR TACHYCARDIA [None]
  - VOMITING [None]
  - WHEEZING [None]
